FAERS Safety Report 4465000-4 (Version None)
Quarter: 2004Q4

REPORT INFORMATION
  Report Type: 
  Country: None (occurrence: None)
  Receive Date: 20041004
  Receipt Date: 20040604
  Transmission Date: 20050328
  Serious: No
  Sender: FDA-Public Use
  Company Number: 374045

PATIENT
  Age: 57 Year
  Sex: Male

DRUGS (3)
  1. COREG [Suspect]
     Indication: HYPERTENSION
     Dosage: 3.215MG TWICE PER DAY
     Route: 048
     Dates: start: 20040524
  2. LOPRESSOR [Concomitant]
  3. ALTACE [Concomitant]

REACTIONS (1)
  - LIBIDO DECREASED [None]
